FAERS Safety Report 8156482-5 (Version None)
Quarter: 2012Q1

REPORT INFORMATION
  Report Type: 
  Country: None (occurrence: None)
  Receive Date: 20120222
  Receipt Date: 20120215
  Transmission Date: 20120608
  Serious: Yes (Other)
  Sender: FDA-Public Use
  Company Number: US-PFIZER INC-2012041787

PATIENT
  Sex: Male
  Weight: 65.76 kg

DRUGS (3)
  1. ATENOLOL [Concomitant]
     Indication: HYPERTENSION
     Dosage: 50 MG, DAILY
  2. MELOXICAM [Concomitant]
     Indication: ARTHRITIS
     Dosage: 15MG, DAILY
     Dates: start: 20110101
  3. LIPITOR [Suspect]
     Indication: BLOOD CHOLESTEROL INCREASED
     Dosage: 20 MG, DAILY
     Route: 048
     Dates: start: 20120105, end: 20120116

REACTIONS (8)
  - ACTIVITIES OF DAILY LIVING IMPAIRED [None]
  - FALL [None]
  - MOBILITY DECREASED [None]
  - MUSCULAR WEAKNESS [None]
  - LOSS OF CONSCIOUSNESS [None]
  - MUSCLE ENZYME INCREASED [None]
  - MYALGIA [None]
  - ARTHRALGIA [None]
